FAERS Safety Report 12076438 (Version 1)
Quarter: 2016Q1

REPORT INFORMATION
  Report Type: Spontaneous
  Country: GB (occurrence: GB)
  Receive Date: 20160215
  Receipt Date: 20160215
  Transmission Date: 20160526
  Serious: Yes (Other)
  Sender: FDA-Public Use
  Company Number: GB-ACCORD-037797

PATIENT
  Age: 37 Year
  Sex: Male
  Weight: 83 kg

DRUGS (5)
  1. AMITRIPTYLINE [Suspect]
     Active Substance: AMITRIPTYLINE
     Indication: PRODUCT USED FOR UNKNOWN INDICATION
     Dates: start: 20160128
  2. PROCHLORPERAZINE. [Concomitant]
     Active Substance: PROCHLORPERAZINE
     Dates: start: 20160127
  3. CODEINE [Concomitant]
     Active Substance: CODEINE
     Dosage: 1-2 FOUR TIMES DAILY
     Dates: start: 20160128
  4. SERTRALINE [Concomitant]
     Active Substance: SERTRALINE HYDROCHLORIDE
     Indication: DEPRESSED MOOD
     Dosage: EACH MORNING
     Dates: start: 20160128
  5. OMEPRAZOLE. [Concomitant]
     Active Substance: OMEPRAZOLE
     Indication: GASTROOESOPHAGEAL REFLUX DISEASE
     Dates: start: 20160128

REACTIONS (1)
  - Substance-induced psychotic disorder [Recovered/Resolved]

NARRATIVE: CASE EVENT DATE: 20160128
